FAERS Safety Report 10631711 (Version 1)
Quarter: 2014Q4

REPORT INFORMATION
  Report Type: Spontaneous
  Country: GB (occurrence: None)
  Receive Date: 20141203
  Receipt Date: 20141203
  Transmission Date: 20150529
  Serious: Yes (Life-Threatening)
  Sender: FDA-Public Use
  Company Number: FK201405618

PATIENT
  Age: 37 Year
  Sex: Female

DRUGS (6)
  1. DIAMORPHINE [Concomitant]
     Active Substance: DIACETYLMORPHINE
  2. NOREPINEPHRINE [Suspect]
     Active Substance: NOREPINEPHRINE\NOREPINEPHRINE BITARTRATE
     Indication: CARDIAC FAILURE
     Dosage: TITRATION
     Route: 050
  3. BUPIVACAINE [Concomitant]
     Active Substance: BUPIVACAINE
  4. HARTMANN^S [Concomitant]
  5. MILRINONE [Suspect]
     Active Substance: MILRINONE
     Indication: CARDIAC FAILURE
     Route: 050
  6. SYNTOCINON [Concomitant]
     Active Substance: OXYTOCIN

REACTIONS (6)
  - Ventricular hypokinesia [None]
  - Pregnancy [None]
  - Dilatation ventricular [None]
  - Dyspnoea exertional [None]
  - Exposure during pregnancy [None]
  - Caesarean section [None]
